FAERS Safety Report 22049991 (Version 1)
Quarter: 2023Q1

REPORT INFORMATION
  Report Type: Spontaneous
  Country: US (occurrence: US)
  Receive Date: 20230301
  Receipt Date: 20230301
  Transmission Date: 20230417
  Serious: No
  Sender: FDA-Public Use
  Company Number: US-SA-SAC20230228000731

PATIENT
  Age: 66 Year
  Sex: Female

DRUGS (4)
  1. DUPIXENT [Suspect]
     Active Substance: DUPILUMAB
     Indication: Dermatitis atopic
     Dosage: 300 MG, QOW
     Route: 058
     Dates: start: 202109
  2. CARISOPRODOL [Concomitant]
     Active Substance: CARISOPRODOL
     Dosage: UNK
  3. SIMPONI [Concomitant]
     Active Substance: GOLIMUMAB
     Dosage: UNK
  4. MODERNA COVID-19 VACCINE [Concomitant]
     Active Substance: ELASOMERAN
     Dosage: UNK

REACTIONS (1)
  - Dermatitis atopic [Not Recovered/Not Resolved]

NARRATIVE: CASE EVENT DATE: 20230101
